FAERS Safety Report 7654490-1 (Version None)
Quarter: 2011Q3

REPORT INFORMATION
  Report Type: 
  Country: None (occurrence: None)
  Receive Date: 20110803
  Receipt Date: 20110728
  Transmission Date: 20111222
  Serious: Yes (Hospitalization)
  Sender: FDA-Public Use
  Company Number: GB-AMGEN-GBRCT2011033105

PATIENT
  Age: 54 Year
  Sex: Female

DRUGS (4)
  1. CYCLOPHOSPHAMIDE [Concomitant]
     Dosage: UNK UNK, Q3WK
     Route: 042
     Dates: start: 20110511
  2. FLUOROURACIL [Concomitant]
     Dosage: UNK UNK, Q3WK
     Route: 042
     Dates: start: 20110511
  3. DENOSUMAB [Suspect]
     Indication: BREAST CANCER
     Dosage: UNK UNK, Q3WK
     Route: 058
     Dates: start: 20110516
  4. EPIRUBICIN [Concomitant]
     Dosage: UNK UNK, Q3WK
     Route: 042
     Dates: start: 20110511

REACTIONS (1)
  - NEUTROPENIC SEPSIS [None]
